FAERS Safety Report 8600667-8 (Version None)
Quarter: 2012Q3

REPORT INFORMATION
  Report Type: 
  Country: None (occurrence: None)
  Receive Date: 20120817
  Receipt Date: 20120807
  Transmission Date: 20120928
  Serious: Yes (Hospitalization, Other)
  Sender: FDA-Public Use
  Company Number: US-JNJFOC-20120804919

PATIENT
  Sex: Female

DRUGS (6)
  1. REMICADE [Suspect]
     Indication: COLITIS ULCERATIVE
     Route: 042
  2. HUMIRA [Suspect]
     Dosage: 40 MG/0.8 ML PRE-FILLED SYRINGE
     Route: 042
     Dates: start: 20090801
  3. HUMIRA [Suspect]
     Indication: POUCHITIS
     Route: 042
     Dates: start: 20120606
  4. HUMIRA [Suspect]
     Indication: COLITIS ULCERATIVE
     Dosage: 40 MG/0.8 ML PRE-FILLED SYRINGE
     Route: 042
     Dates: start: 20090801
  5. HUMIRA [Suspect]
     Route: 042
     Dates: start: 20120606
  6. MERCAPTOPURINE [Suspect]
     Indication: PRODUCT USED FOR UNKNOWN INDICATION
     Dosage: 40 MG/0.8 ML PRE-FILLED SYRINGE
     Route: 065

REACTIONS (6)
  - ILEOSTOMY [None]
  - INTESTINAL OPERATION [None]
  - PELVIC POUCH PROCEDURE [None]
  - TREATMENT FAILURE [None]
  - POUCHITIS [None]
  - OFF LABEL USE [None]
